FAERS Safety Report 5405826-3 (Version None)
Quarter: 2007Q3

REPORT INFORMATION
  Report Type: 
  Country: None (occurrence: None)
  Receive Date: 20070806
  Receipt Date: 20070725
  Transmission Date: 20080115
  Serious: Yes (Hospitalization)
  Sender: FDA-Public Use
  Company Number: ES-NOVOPROD-265991

PATIENT
  Age: 48 Year
  Sex: Male
  Weight: 80 kg

DRUGS (3)
  1. NOVONORM [Suspect]
     Indication: DIABETES MELLITUS
     Dosage: 6 MG, QD
     Dates: start: 20070612, end: 20070615
  2. GEMFIBROZIL [Concomitant]
     Indication: DYSLIPIDAEMIA
     Dosage: 900 MG, QD
     Route: 048
     Dates: start: 20070401, end: 20070615
  3. TRIMETOPRIM                        /00086101/ [Concomitant]
     Indication: URINARY TRACT INFECTION

REACTIONS (1)
  - HYPOGLYCAEMIC UNCONSCIOUSNESS [None]
